FAERS Safety Report 10147324 (Version 1)
Quarter: 2014Q2

REPORT INFORMATION
  Report Type: Spontaneous
  Country: US (occurrence: US)
  Receive Date: 20140501
  Receipt Date: 20140501
  Transmission Date: 20141212
  Serious: No
  Sender: FDA-Public Use
  Company Number: US-SA-2014SA011834

PATIENT
  Age: 76 Year
  Sex: Female
  Weight: 80.5 kg

DRUGS (7)
  1. HECTOROL [Suspect]
     Indication: PRODUCT USED FOR UNKNOWN INDICATION
     Route: 065
     Dates: start: 20131217, end: 20131223
  2. PHOSLO [Concomitant]
     Indication: HYPERPHOSPHATAEMIA
  3. COUMADIN [Concomitant]
     Indication: ATRIAL FIBRILLATION
     Dosage: GVS
     Route: 048
  4. LEVOTHYROXINE [Concomitant]
     Indication: HYPOTHYROIDISM
     Dosage: GVM
  5. SIMVASTATIN [Concomitant]
     Indication: HYPERLIPIDAEMIA
     Dosage: GHS
     Route: 048
  6. ALL OTHER THERAPEUTIC PRODUCTS [Concomitant]
     Dosage: VITAMIN
  7. NOVOLOG [Concomitant]
     Dosage: INSULIN

REACTIONS (2)
  - Chest discomfort [Unknown]
  - Pain [Unknown]
